FAERS Safety Report 9255424 (Version 1)
Quarter: 2013Q1

REPORT INFORMATION
  Report Type: Spontaneous
  Country: US (occurrence: None)
  Receive Date: 20121212
  Receipt Date: 20121212
  Transmission Date: 20140127
  Serious: No
  Sender: FDA-Public Use
  Company Number: 1209USA010440

PATIENT
  Sex: Male

DRUGS (2)
  1. PEGINTRON [Suspect]
     Dosage: REDIPEN
     Dates: start: 20120907
  2. REBETOL [Suspect]
     Indication: HEPATITIS C
     Dates: start: 20120907

REACTIONS (6)
  - Mood swings [None]
  - Poor quality sleep [None]
  - Anxiety [None]
  - Fatigue [None]
  - Nausea [None]
  - Influenza like illness [None]
